FAERS Safety Report 7312267-0 (Version None)
Quarter: 2011Q1

REPORT INFORMATION
  Report Type: 
  Country: None (occurrence: None)
  Receive Date: 20110224
  Receipt Date: 20110214
  Transmission Date: 20110831
  Serious: Yes (Hospitalization, Congenital Anomaly)
  Sender: FDA-Public Use
  Company Number: A0915086A

PATIENT
  Sex: Female
  Weight: 1.9 kg

DRUGS (1)
  1. PAXIL [Suspect]
     Dates: start: 20010620, end: 20011218

REACTIONS (4)
  - VACTERL SYNDROME [None]
  - DRUG EXPOSURE DURING PREGNANCY [None]
  - FALLOT'S TETRALOGY [None]
  - LUNG DISORDER [None]
